FAERS Safety Report 6368306-7 (Version None)
Quarter: 2009Q3

REPORT INFORMATION
  Report Type: 
  Country: None (occurrence: None)
  Receive Date: 20090922
  Receipt Date: 20090911
  Transmission Date: 20100115
  Serious: Yes (Hospitalization, Other)
  Sender: FDA-Public Use
  Company Number: PL-ROCHE-657501

PATIENT
  Age: 46 Year
  Sex: Female

DRUGS (2)
  1. DIAZEPAM [Suspect]
     Route: 065
  2. PERAZINE [Suspect]
     Route: 065

REACTIONS (6)
  - AGRANULOCYTOSIS [None]
  - COUGH [None]
  - DIARRHOEA [None]
  - LEUKOPENIA [None]
  - PYREXIA [None]
  - THROAT LESION [None]
